FAERS Safety Report 4618200-4 (Version None)
Quarter: 2005Q1

REPORT INFORMATION
  Report Type: 
  Country: None (occurrence: None)
  Receive Date: 20050323
  Receipt Date: 20050303
  Transmission Date: 20050727
  Serious: Yes (Other)
  Sender: FDA-Public Use
  Company Number: GBS050216745

PATIENT
  Age: 14 Year
  Sex: Male
  Weight: 58 kg

DRUGS (2)
  1. STRATTERA [Suspect]
     Indication: ATTENTION DEFICIT/HYPERACTIVITY DISORDER
     Dosage: 60 MG/ 1DAY
     Dates: start: 20050106, end: 20050219
  2. METHYLPHENIDATE [Concomitant]

REACTIONS (9)
  - BLOOD ALKALINE PHOSPHATASE INCREASED [None]
  - BLOOD BILIRUBIN INCREASED [None]
  - EPISTAXIS [None]
  - FEELING ABNORMAL [None]
  - GILBERT'S SYNDROME [None]
  - HEADACHE [None]
  - PYREXIA [None]
  - THERAPY NON-RESPONDER [None]
  - VIRAL INFECTION [None]
